FAERS Safety Report 4695114-5 (Version None)
Quarter: 2005Q2

REPORT INFORMATION
  Report Type: 
  Country: None (occurrence: None)
  Receive Date: 20050617
  Receipt Date: 20050606
  Transmission Date: 20051028
  Serious: Yes (Hospitalization)
  Sender: FDA-Public Use
  Company Number: 2005085606

PATIENT
  Age: 63 Year
  Sex: Male

DRUGS (9)
  1. VFEND [Suspect]
     Indication: CANDIDIASIS
     Dosage: 400 MG (200 MG, 2 IN 1 D), ORAL
     Route: 048
     Dates: start: 20050419
  2. PREVISCAN (FLUINDIONE) [Suspect]
     Indication: CARDIAC VALVE REPLACEMENT COMPLICATION
     Dosage: 1 TABLET (20 MG, 1 IN 1 D), ORAL
     Route: 048
     Dates: start: 20050422, end: 20050424
  3. CIFLOX (CIPROFLOXACIN) [Concomitant]
  4. CLAVENTIN (CLAVULANATE POTASSIUM, TICARCILLIN DISODIUM) [Concomitant]
  5. ZOCOR [Concomitant]
  6. PROGRAF [Concomitant]
  7. SURBRONC (AMBROXOL HYDROCHLORIDE) [Concomitant]
  8. ACETAMINOPHEN [Concomitant]
  9. INEXIUM (ESOMEPRAZOLE MAGNESIUM) [Concomitant]

REACTIONS (3)
  - HAEMATOMA [None]
  - INTERNATIONAL NORMALISED RATIO INCREASED [None]
  - RECTAL HAEMORRHAGE [None]
